FAERS Safety Report 23061095 (Version 2)
Quarter: 2023Q4

REPORT INFORMATION
  Report Type: Spontaneous
  Country: US (occurrence: US)
  Receive Date: 20231013
  Receipt Date: 20231017
  Transmission Date: 20240110
  Serious: Yes (Other)
  Sender: FDA-Public Use
  Company Number: US-ABBVIE-5441731

PATIENT
  Sex: Male
  Weight: 120 kg

DRUGS (3)
  1. LINZESS [Suspect]
     Active Substance: LINACLOTIDE
     Indication: Constipation
     Dosage: STARTED 4-5 YEARS AGO
     Route: 048
     Dates: start: 2019
  2. LINZESS [Suspect]
     Active Substance: LINACLOTIDE
     Indication: Constipation
     Dosage: FORM STRENGTH: 72 MICROGRAM SPORADICALLY
     Route: 048
     Dates: start: 202212, end: 202307
  3. LINZESS [Suspect]
     Active Substance: LINACLOTIDE
     Indication: Constipation
     Dosage: FORM STRENGTH: 72 MICROGRAM
     Route: 048
     Dates: start: 2023

REACTIONS (10)
  - Non-Hodgkin^s lymphoma [Recovering/Resolving]
  - Diarrhoea [Not Recovered/Not Resolved]
  - Intentional product misuse [Unknown]
  - Constipation [Unknown]
  - Memory impairment [Not Recovered/Not Resolved]
  - Neoplasm [Recovering/Resolving]
  - Neoplasm malignant [Recovering/Resolving]
  - Memory impairment [Unknown]
  - Slow speech [Unknown]
  - Unevaluable event [Recovering/Resolving]

NARRATIVE: CASE EVENT DATE: 20190101
